FAERS Safety Report 13892773 (Version 1)
Quarter: 2017Q3

REPORT INFORMATION
  Report Type: Spontaneous
  Country: US (occurrence: US)
  Receive Date: 20170822
  Receipt Date: 20170822
  Transmission Date: 20171127
  Serious: No
  Sender: FDA-Public Use
  Company Number: US-ROCHE-1312854

PATIENT
  Sex: Female
  Weight: 56.75 kg

DRUGS (3)
  1. TAXOL [Concomitant]
     Active Substance: PACLITAXEL
  2. HERCEPTIN [Suspect]
     Active Substance: TRASTUZUMAB
     Dosage: DOSE CHANGED
     Route: 065
  3. HERCEPTIN [Suspect]
     Active Substance: TRASTUZUMAB
     Indication: BREAST CANCER
     Dosage: SHE RECEIVED TRASTUZUMAB INFUSIONS ON 17/OCT/2013, 31/OCT/2013, 07/NOV/2013, 14/NOV/2013, 21/NOV/201
     Route: 065
     Dates: start: 20130419

REACTIONS (1)
  - Pregnancy [Unknown]
